FAERS Safety Report 10459511 (Version 3)
Quarter: 2015Q1

REPORT INFORMATION
  Report Type: Report from Study
  Country: US (occurrence: US)
  Receive Date: 20140917
  Receipt Date: 20150326
  Transmission Date: 20150720
  Serious: Yes (Death, Other)
  Sender: FDA-Public Use
  Company Number: US-GILEAD-2014-0115166

PATIENT
  Age: 72 Year
  Sex: Male

DRUGS (14)
  1. POTASSIUM [Concomitant]
     Active Substance: POTASSIUM
  2. ATENOLOL. [Concomitant]
     Active Substance: ATENOLOL
  3. AMLODIPINE [Concomitant]
     Active Substance: AMLODIPINE BESYLATE
  4. METFORMIN [Concomitant]
     Active Substance: METFORMIN HYDROCHLORIDE
  5. LANTUS [Concomitant]
     Active Substance: INSULIN GLARGINE
  6. SIMVASTATIN. [Concomitant]
     Active Substance: SIMVASTATIN
  7. AMBRISENTAN [Suspect]
     Active Substance: AMBRISENTAN
     Indication: PULMONARY ARTERIAL HYPERTENSION
     Dosage: 10 MG, QD
     Route: 065
     Dates: start: 20140828
  8. OMEPRAZOLE. [Concomitant]
     Active Substance: OMEPRAZOLE
  9. AMBRISENTAN [Suspect]
     Active Substance: AMBRISENTAN
     Dosage: 5 UNK, UNK
  10. DULERA [Concomitant]
     Active Substance: FORMOTEROL FUMARATE DIHYDRATE\MOMETASONE FUROATE
  11. SPIRIVA [Concomitant]
     Active Substance: TIOTROPIUM BROMIDE MONOHYDRATE
  12. BENAZEPRIL [Concomitant]
     Active Substance: BENAZEPRIL\BENAZEPRIL HYDROCHLORIDE
  13. FUROSEMIDE. [Concomitant]
     Active Substance: FUROSEMIDE
  14. AMITRIPTYLINE [Concomitant]
     Active Substance: AMITRIPTYLINE

REACTIONS (4)
  - Dizziness postural [Unknown]
  - Inner ear disorder [Unknown]
  - Headache [Unknown]
  - Death [Fatal]

NARRATIVE: CASE EVENT DATE: 20140908
